FAERS Safety Report 4760202-1 (Version None)
Quarter: 2005Q3

REPORT INFORMATION
  Report Type: 
  Country: None (occurrence: None)
  Receive Date: 20050902
  Receipt Date: 20050824
  Transmission Date: 20060218
  Serious: Yes (Other)
  Sender: FDA-Public Use
  Company Number: DE-JNJFOC-20050700295

PATIENT
  Sex: Female
  Weight: 55 kg

DRUGS (6)
  1. RISPERDAL [Suspect]
     Route: 048
  2. LORAZEPAM [Concomitant]
     Dosage: 0.5 - 4MG DAILY
     Route: 048
  3. SEROQUEL [Concomitant]
     Dosage: 100 - 800MG DAILY
     Route: 048
  4. SOLIAN [Concomitant]
     Dosage: REPORTED AS 400-100MG DAILY
     Route: 048
  5. ABILIFY [Concomitant]
     Route: 048
  6. AKINETON [Concomitant]

REACTIONS (1)
  - LEUKOPENIA [None]
